FAERS Safety Report 13594307 (Version 8)
Quarter: 2020Q2

REPORT INFORMATION
  Report Type: Spontaneous
  Country: US (occurrence: US)
  Receive Date: 20170530
  Receipt Date: 20200519
  Transmission Date: 20200713
  Serious: No
  Sender: FDA-Public Use
  Company Number: US-PFIZER INC-2017234901

PATIENT
  Age: 85 Year
  Sex: Female

DRUGS (4)
  1. LYRICA [Suspect]
     Active Substance: PREGABALIN
     Indication: PAIN IN EXTREMITY
  2. LYRICA [Suspect]
     Active Substance: PREGABALIN
     Indication: HYPOAESTHESIA
  3. LYRICA [Suspect]
     Active Substance: PREGABALIN
     Indication: NEUROPATHY PERIPHERAL
     Dosage: 225 MG, DAILY (75 MG THREE PILLS A DAY)
  4. LYRICA [Suspect]
     Active Substance: PREGABALIN
     Indication: FIBROMYALGIA

REACTIONS (7)
  - Incontinence [Unknown]
  - Drug hypersensitivity [Unknown]
  - Skin irritation [Unknown]
  - Bladder disorder [Unknown]
  - Rash pruritic [Unknown]
  - Burning sensation [Unknown]
  - Pain [Unknown]
